FAERS Safety Report 12946174 (Version 1)
Quarter: 2016Q4

REPORT INFORMATION
  Report Type: Spontaneous
  Country: US (occurrence: US)
  Receive Date: 20161115
  Receipt Date: 20161115
  Transmission Date: 20170207
  Serious: Yes (Death, Hospitalization)
  Sender: FDA-Public Use
  Company Number: US-BAXTER-2016BAX056992

PATIENT
  Age: 86 Year
  Sex: Female

DRUGS (2)
  1. ARANESP [Concomitant]
     Active Substance: DARBEPOETIN ALFA
     Indication: PRODUCT USED FOR UNKNOWN INDICATION
     Route: 065
     Dates: start: 20161007, end: 20161027
  2. DIANEAL LOW CALCIUM PERITONEAL DIALYSIS SOLUTION WITH DEXTROSE [Suspect]
     Active Substance: CALCIUM CHLORIDE\DEXTROSE\MAGNESIUM CHLORIDE\SODIUM CHLORIDE\SODIUM LACTATE
     Indication: PERITONEAL DIALYSIS
     Dosage: 3 EXCHANGES
     Route: 033
     Dates: end: 20161027

REACTIONS (3)
  - Haemoglobin abnormal [Unknown]
  - Sepsis [Fatal]
  - Decubitus ulcer [Unknown]

NARRATIVE: CASE EVENT DATE: 20161007
